FAERS Safety Report 8835440 (Version 5)
Quarter: 2013Q2

REPORT INFORMATION
  Report Type: Spontaneous
  Country: US (occurrence: US)
  Receive Date: 20121011
  Receipt Date: 20130409
  Transmission Date: 20140414
  Serious: Yes (Hospitalization, Other)
  Sender: FDA-Public Use
  Company Number: US-US-EMD SERONO, INC.-7165755

PATIENT
  Age: 51 Year
  Sex: Male

DRUGS (6)
  1. REBIF [Suspect]
     Indication: MULTIPLE SCLEROSIS
     Route: 058
     Dates: start: 20030605, end: 20130306
  2. LISINOPRIL [Concomitant]
     Indication: BLOOD PRESSURE
  3. METHADONE [Concomitant]
     Indication: PRODUCT USED FOR UNKNOWN INDICATION
  4. TEMAZEPAM [Concomitant]
     Indication: INSOMNIA
     Route: 048
  5. LASIX                              /00032601/ [Concomitant]
     Indication: OEDEMA
  6. POTASSIUM [Concomitant]
     Indication: SUPPLEMENTATION THERAPY

REACTIONS (8)
  - Psoriatic arthropathy [Unknown]
  - Hypertension [Recovered/Resolved]
  - Multiple sclerosis relapse [Unknown]
  - Dizziness [Not Recovered/Not Resolved]
  - Fall [Unknown]
  - Gait disturbance [Not Recovered/Not Resolved]
  - Multiple sclerosis [Unknown]
  - Muscular weakness [Unknown]
